FAERS Safety Report 8337621-X (Version None)
Quarter: 2012Q2

REPORT INFORMATION
  Report Type: 
  Country: None (occurrence: None)
  Receive Date: 20120504
  Receipt Date: 20120425
  Transmission Date: 20120825
  Serious: Yes (Other)
  Sender: FDA-Public Use
  Company Number: CA-FRI-1000028475

PATIENT
  Age: 16 Year
  Sex: Female

DRUGS (5)
  1. ESCITALOPRAM [Suspect]
     Dosage: MAY GIVE 15 MG INSTEAD OF 10 MG WHEN NECESSARY
     Route: 048
     Dates: end: 20120202
  2. ESCITALOPRAM [Suspect]
     Dosage: 10 MG
     Route: 048
     Dates: start: 20120313, end: 20120424
  3. ESCITALOPRAM [Suspect]
     Indication: ANXIETY
     Dosage: 10 MG
     Route: 048
     Dates: end: 20120202
  4. ESCITALOPRAM [Suspect]
     Dosage: 10 MG
     Route: 048
     Dates: start: 20120205, end: 20120208
  5. ESCITALOPRAM [Suspect]
     Dosage: 5 MG
     Route: 048
     Dates: start: 20120425

REACTIONS (8)
  - MUSCLE TWITCHING [None]
  - URINE OUTPUT DECREASED [None]
  - TONGUE PARALYSIS [None]
  - DRUG WITHDRAWAL SYNDROME [None]
  - CONVULSION [None]
  - DECREASED APPETITE [None]
  - DYSKINESIA [None]
  - OFF LABEL USE [None]
